FAERS Safety Report 12651378 (Version 4)
Quarter: 2016Q4

REPORT INFORMATION
  Report Type: Report from Study
  Country: PL (occurrence: PL)
  Receive Date: 20160815
  Receipt Date: 20161123
  Transmission Date: 20170207
  Serious: Yes (Hospitalization, Other)
  Sender: FDA-Public Use
  Company Number: PL-ASTELLAS-2016US030424

PATIENT
  Age: 66 Year
  Sex: Male

DRUGS (13)
  1. INDAPAMIDE. [Concomitant]
     Active Substance: INDAPAMIDE
     Indication: HYPERTENSION
     Dosage: 1.5 MG (TOTAL DAILY DOSE), UNKNOWN FREQ.
     Route: 048
  2. OPOKAN [Concomitant]
     Indication: BACK PAIN
     Dosage: 1 TABLET, AS NEEDED
     Route: 048
     Dates: start: 201604
  3. ETHAMSYLATE [Concomitant]
     Active Substance: ETHAMSYLATE
     Indication: HAEMATURIA
     Dosage: 4 TABLET (TOTAL DAILY DOSE), UNKNOWN FREQ.
     Route: 048
     Dates: start: 20160612
  4. PARACETAMOL [Concomitant]
     Active Substance: ACETAMINOPHEN
     Indication: BACK PAIN
     Dosage: 1 TABLET, AS NEEDED
     Route: 048
     Dates: start: 201604
  5. DOCETAXEL. [Suspect]
     Active Substance: DOCETAXEL
     Indication: PROSTATE CANCER METASTATIC
     Route: 042
     Dates: start: 20160204, end: 20160523
  6. PERINDOPRIL [Concomitant]
     Active Substance: PERINDOPRIL
     Indication: HYPERTENSION
     Dosage: 5 MG (TOTAL DAILY DOSE), UNKNOWN FREQ.
     Route: 048
  7. CALCIUM CARBONATE. [Concomitant]
     Active Substance: CALCIUM CARBONATE
     Indication: MINERAL SUPPLEMENTATION
     Dosage: 1 TABLET (TOTAL DAILY DOSE), UNKNOWN FREQ.
     Route: 048
     Dates: start: 20151207
  8. TRANEXAMIC ACID. [Concomitant]
     Active Substance: TRANEXAMIC ACID
     Indication: HAEMATURIA
     Dosage: 5 TABLETS (TOTAL DAILY DOSE), UNKNOWN FREQ.
     Route: 048
     Dates: start: 20160607
  9. PLACEBO [Suspect]
     Active Substance: UNSPECIFIED INGREDIENT
     Indication: PROSTATE CANCER METASTATIC
     Dosage: UNK UNK, UNKNOWN FREQ.
     Route: 048
     Dates: start: 20160204, end: 20160613
  10. ZOLEDRONIC ACID [Concomitant]
     Active Substance: ZOLEDRONIC ACID
     Indication: METASTASES TO BONE
     Route: 042
     Dates: start: 20151228
  11. ACENOCUMAROL [Concomitant]
     Active Substance: ACENOCOUMAROL
     Indication: ATRIAL FIBRILLATION
     Dosage: 2 MG (TOTAL DAILY DOSE), UNKNOWN FREQ.
     Route: 048
  12. OPOKAN [Concomitant]
     Indication: NECK PAIN
  13. PARACETAMOL [Concomitant]
     Active Substance: ACETAMINOPHEN
     Indication: NECK PAIN

REACTIONS (2)
  - Anaemia [Recovered/Resolved]
  - Malignant neoplasm progression [Recovered/Resolved with Sequelae]

NARRATIVE: CASE EVENT DATE: 20160613
